FAERS Safety Report 5176155-0 (Version None)
Quarter: 2006Q4

REPORT INFORMATION
  Report Type: 
  Country: None (occurrence: None)
  Receive Date: 20061215
  Receipt Date: 20060626
  Transmission Date: 20070319
  Serious: No
  Sender: FDA-Public Use
  Company Number: US-AMGEN-KDL184480

PATIENT
  Sex: Female

DRUGS (2)
  1. ENBREL [Suspect]
     Indication: RHEUMATOID ARTHRITIS
     Route: 058
     Dates: start: 20060524
  2. METHOTREXATE [Concomitant]
     Route: 048
     Dates: start: 19980101

REACTIONS (5)
  - EAR CONGESTION [None]
  - HYPOACUSIS [None]
  - INJECTION SITE BRUISING [None]
  - VERTIGO [None]
  - VOMITING [None]
